FAERS Safety Report 16342200 (Version 2)
Quarter: 2019Q2

REPORT INFORMATION
  Report Type: Spontaneous
  Country: DE (occurrence: DE)
  Receive Date: 20190522
  Receipt Date: 20190625
  Transmission Date: 20190711
  Serious: Yes (Other)
  Sender: FDA-Public Use
  Company Number: DE-BAYER-2018-144295

PATIENT
  Age: 27 Year
  Sex: Female

DRUGS (1)
  1. JAYDESS [Suspect]
     Active Substance: LEVONORGESTREL
     Indication: CONTRACEPTION
     Dosage: 14 MCG/24HR, CONT
     Route: 015
     Dates: start: 201701, end: 20190110

REACTIONS (6)
  - Pregnancy with contraceptive device [None]
  - Premature rupture of membranes [None]
  - Drug ineffective [None]
  - Abortion threatened [None]
  - Amniotic cavity infection [None]
  - Haemorrhage in pregnancy [None]

NARRATIVE: CASE EVENT DATE: 2018
